FAERS Safety Report 9614979 (Version 1)
Quarter: 2013Q4

REPORT INFORMATION
  Report Type: Spontaneous
  Country: US (occurrence: US)
  Receive Date: 20131011
  Receipt Date: 20131011
  Transmission Date: 20140711
  Serious: Yes (Hospitalization, Other)
  Sender: FDA-Public Use
  Company Number: US-NOVOPROD-389313

PATIENT
  Age: 4 Year
  Sex: Female
  Weight: 13.61 kg

DRUGS (2)
  1. NOVOSEVEN RT [Suspect]
     Indication: FACTOR VII DEFICIENCY
     Dosage: 400 ?G, QOD
     Route: 042
     Dates: end: 2013
  2. NOVOSEVEN RT [Suspect]
     Dosage: 330 ?G, Q12HOURS
     Route: 042
     Dates: start: 2013

REACTIONS (2)
  - Convulsion [Unknown]
  - Haemorrhage intracranial [Recovered/Resolved]
